FAERS Safety Report 24461952 (Version 1)
Quarter: 2024Q4

REPORT INFORMATION
  Report Type: Report from Study
  Country: US (occurrence: US)
  Receive Date: 20241018
  Receipt Date: 20241018
  Transmission Date: 20250114
  Serious: No
  Sender: ROCHE
  Company Number: US-ROCHE-3577495

PATIENT
  Age: 42 Year
  Sex: Female

DRUGS (31)
  1. RITUXAN [Suspect]
     Active Substance: RITUXIMAB
     Indication: Rheumatoid arthritis
     Dosage: 1000 MG EVERY 2 WEEKS, EVERY 4 MONTHS
     Route: 041
  2. RITUXAN [Suspect]
     Active Substance: RITUXIMAB
     Indication: Rheumatoid arthritis
  3. ALBUTEROL SULFATE [Concomitant]
     Active Substance: ALBUTEROL SULFATE
  4. XANAX [Concomitant]
     Active Substance: ALPRAZOLAM
     Route: 048
  5. ELIQUIS [Concomitant]
     Active Substance: APIXABAN
     Route: 048
  6. WELLBUTRIN XL [Concomitant]
     Active Substance: BUPROPION HYDROCHLORIDE
     Route: 048
  7. VITAMIN D3 [Concomitant]
     Active Substance: CHOLECALCIFEROL
  8. FLEXERIL [Concomitant]
     Active Substance: CYCLOBENZAPRINE HYDROCHLORIDE
     Route: 048
  9. DESVENLAFAXINE [Concomitant]
     Active Substance: DESVENLAFAXINE
  10. ALLEGRA [Concomitant]
     Active Substance: FEXOFENADINE HYDROCHLORIDE
  11. FLOVENT [Concomitant]
     Active Substance: FLUTICASONE PROPIONATE
  12. FLONASE [Concomitant]
     Active Substance: FLUTICASONE PROPIONATE
  13. DILAUDID [Concomitant]
     Active Substance: HYDROMORPHONE HYDROCHLORIDE
  14. PLAQUENIL [Concomitant]
     Active Substance: HYDROXYCHLOROQUINE SULFATE
  15. ARAVA [Concomitant]
     Active Substance: LEFLUNOMIDE
  16. MIRENA [Concomitant]
     Active Substance: LEVONORGESTREL
  17. ATIVAN [Concomitant]
     Active Substance: LORAZEPAM
  18. CONCERTA [Concomitant]
     Active Substance: METHYLPHENIDATE HYDROCHLORIDE
  19. RITALIN [Concomitant]
     Active Substance: METHYLPHENIDATE HYDROCHLORIDE
  20. MS CONTIN [Concomitant]
     Active Substance: MORPHINE SULFATE
  21. NARCAN [Concomitant]
     Active Substance: NALOXONE HYDROCHLORIDE
  22. NYSTOP [Concomitant]
     Active Substance: NYSTATIN
  23. ZOFRAN [Concomitant]
     Active Substance: ONDANSETRON HYDROCHLORIDE
  24. DELTASONE [Concomitant]
     Active Substance: PREDNISONE
  25. LYRICA [Concomitant]
     Active Substance: PREGABALIN
  26. NURTEC ODT [Concomitant]
     Active Substance: RIMEGEPANT SULFATE
  27. MAXALT [Concomitant]
     Active Substance: RIZATRIPTAN BENZOATE
  28. ZANAFLEX [Concomitant]
     Active Substance: TIZANIDINE HYDROCHLORIDE
  29. VALTREX [Concomitant]
     Active Substance: VALACYCLOVIR HYDROCHLORIDE
  30. CALAN SR [Concomitant]
     Active Substance: VERAPAMIL HYDROCHLORIDE
  31. GEODON [Concomitant]
     Active Substance: ZIPRASIDONE HYDROCHLORIDE\ZIPRASIDONE MESYLATE

REACTIONS (2)
  - Off label use [Unknown]
  - No adverse event [Unknown]
